FAERS Safety Report 6937505-5 (Version None)
Quarter: 2010Q3

REPORT INFORMATION
  Report Type: 
  Country: None (occurrence: None)
  Receive Date: 20100823
  Receipt Date: 20100806
  Transmission Date: 20110219
  Serious: Yes (Hospitalization, Other)
  Sender: FDA-Public Use
  Company Number: PHHY2010BR52145

PATIENT
  Sex: Female

DRUGS (3)
  1. DIOVAN HCT [Suspect]
     Dosage: ONE TABLET (80/12.5 MG) DAILY
  2. DIOVAN HCT [Suspect]
     Dosage: ONE TABLET (160/25 MG) DAILY
  3. AMLODIPINE BESYLATE [Concomitant]
     Dosage: ONE TABLET (10 MG) DAILY

REACTIONS (5)
  - BLOOD PRESSURE INADEQUATELY CONTROLLED [None]
  - BLOOD PRESSURE INCREASED [None]
  - DIZZINESS [None]
  - NERVOUSNESS [None]
  - VOMITING [None]
